FAERS Safety Report 23197631 (Version 1)
Quarter: 2023Q4

REPORT INFORMATION
  Report Type: Report from Study
  Country: DE (occurrence: DE)
  Receive Date: 20231117
  Receipt Date: 20231117
  Transmission Date: 20240110
  Serious: Yes (Hospitalization, Other)
  Sender: FDA-Public Use
  Company Number: DE-ROCHE-2253150

PATIENT
  Age: 39 Year
  Sex: Female

DRUGS (23)
  1. TAVOR (LORAZEPAM) [Suspect]
     Active Substance: LORAZEPAM
     Indication: Depression
     Dosage: UNK
  2. TAVOR (LORAZEPAM) [Suspect]
     Active Substance: LORAZEPAM
     Dosage: 0.5 MG
  3. OCREVUS [Suspect]
     Active Substance: OCRELIZUMAB
     Indication: Relapsing-remitting multiple sclerosis
     Dosage: 300 MG
     Dates: start: 20180621
  4. OCREVUS [Suspect]
     Active Substance: OCRELIZUMAB
     Dosage: 600 MG, EVERY 175 DAYS
     Dates: start: 20181213
  5. OCREVUS [Suspect]
     Active Substance: OCRELIZUMAB
     Dosage: 600 MG, EVERY 184 DAYS, 4TH MAINTENANCE DOSE
     Dates: start: 20200608
  6. OCREVUS [Suspect]
     Active Substance: OCRELIZUMAB
     Dosage: EVERY 182 DAYS, SUBSEQUENT DOSE ADMINISTERED: 11DEC2019
     Dates: start: 20190613
  7. OCREVUS [Suspect]
     Active Substance: OCRELIZUMAB
     Dosage: 600 MG, EVERY 224 DAYS
     Dates: start: 20210908
  8. DIAZEPAM [Suspect]
     Active Substance: DIAZEPAM
     Dosage: UNK
  9. COMIRNATY (TOZINAMERAN) [Concomitant]
     Active Substance: TOZINAMERAN
     Indication: COVID-19 immunisation
     Dosage: UNK
  10. MOVICOL [Concomitant]
     Active Substance: POLYETHYLENE GLYCOL 3350\POTASSIUM CHLORIDE\SODIUM BICARBONATE\SODIUM CHLORIDE
     Dosage: UNK UNK, 2X/DAY
  11. MOVICOL [Concomitant]
     Active Substance: POLYETHYLENE GLYCOL 3350\POTASSIUM CHLORIDE\SODIUM BICARBONATE\SODIUM CHLORIDE
     Dosage: 1 DF, 2X/DAY
  12. VALDOXAN [Concomitant]
     Active Substance: AGOMELATINE
     Indication: Depression
     Dosage: 50 MG, 1X/DAY AT NIGHT
  13. VALDOXAN [Concomitant]
     Active Substance: AGOMELATINE
     Dosage: 25 MG, 1X/DAY ONCE IN THE EVENING
  14. BACLOFEN [Concomitant]
     Active Substance: BACLOFEN
     Indication: Multiple sclerosis
     Dosage: 60 MG
  15. BACLOFEN [Concomitant]
     Active Substance: BACLOFEN
     Dosage: 65 MG
     Dates: start: 2020
  16. BACLOFEN [Concomitant]
     Active Substance: BACLOFEN
     Dosage: FREQ:.25 D;10 MG AND 5 MG 4XDAILY, 65 MG DAILY
  17. BACLOFEN [Concomitant]
     Active Substance: BACLOFEN
     Dosage: FREQ:.25 D;10 MG AND 5 MG 4XDAILY, 60 MG DAILY
  18. BACLOFEN [Concomitant]
     Active Substance: BACLOFEN
     Dosage: 3 TIMES 1.5 TABLETS
  19. BUPROPION HYDROCHLORIDE [Concomitant]
     Active Substance: BUPROPION HYDROCHLORIDE
     Dosage: 300 MG
  20. FLUTICASONE FUROATE\VILANTEROL TRIFENATATE [Concomitant]
     Active Substance: FLUTICASONE FUROATE\VILANTEROL TRIFENATATE
     Dosage: 92UG/22UG
  21. NABIXIMOLS [Concomitant]
     Active Substance: NABIXIMOLS
     Indication: Multiple sclerosis
     Dosage: UNK
  22. NABIXIMOLS [Concomitant]
     Active Substance: NABIXIMOLS
     Dosage: 6 PUMPS PER DAY
  23. NABIXIMOLS [Concomitant]
     Active Substance: NABIXIMOLS
     Dosage: 2-4 PUMPS PER DAY

REACTIONS (20)
  - Wrist fracture [Not Recovered/Not Resolved]
  - Depression [Recovered/Resolved]
  - Comminuted fracture [Not Recovered/Not Resolved]
  - Fall [Unknown]
  - Suicide attempt [Recovered/Resolved]
  - Multiple sclerosis [Recovering/Resolving]
  - Electrocardiogram QT interval abnormal [Recovered/Resolved]
  - Weight decreased [Recovering/Resolving]
  - Lymphatic disorder [Unknown]
  - Lymphoedema [Unknown]
  - Gastritis [Recovered/Resolved]
  - Decreased appetite [Recovered/Resolved]
  - Skin discolouration [Not Recovered/Not Resolved]
  - Disturbance in attention [Recovered/Resolved]
  - Muscle spasms [Recovering/Resolving]
  - Fatigue [Recovered/Resolved]
  - Magnesium deficiency [Recovered/Resolved]
  - Peripheral swelling [Recovered/Resolved]
  - Overdose [Unknown]
  - Off label use [Unknown]

NARRATIVE: CASE EVENT DATE: 20180621
